FAERS Safety Report 16027966 (Version 1)
Quarter: 2019Q1

REPORT INFORMATION
  Report Type: Spontaneous
  Country: CA (occurrence: CA)
  Receive Date: 20190304
  Receipt Date: 20190304
  Transmission Date: 20190418
  Serious: Yes (Death)
  Sender: FDA-Public Use
  Company Number: CA-SA-2019SA054880

PATIENT
  Age: 53 Year
  Sex: Male
  Weight: 69 kg

DRUGS (11)
  1. AMLODIPINE [Concomitant]
     Active Substance: AMLODIPINE BESYLATE
     Dosage: 5 MG, QD
     Route: 048
  2. CEPTROCIN [Concomitant]
     Dosage: 2 G, BID
     Route: 042
  3. ONDANSETRON [Concomitant]
     Active Substance: ONDANSETRON
     Dosage: 8 MG, BID
     Route: 048
  4. OXALIPLATIN. [Suspect]
     Active Substance: OXALIPLATIN
     Indication: CHEMOTHERAPY
     Dosage: 155 MG, TOTAL
  5. CLOXACILLIN [Concomitant]
     Active Substance: CLOXACILLIN
     Dosage: 2 G (6 EVERY 1 DAY)
  6. DEXAMETHASONE. [Concomitant]
     Active Substance: DEXAMETHASONE
     Dosage: 8 MG, UNK
  7. KEPPRA [Concomitant]
     Active Substance: LEVETIRACETAM
     Dosage: 500 MG, BID
     Route: 048
  8. CALCIUM FOLINATE [Suspect]
     Active Substance: LEUCOVORIN CALCIUM
     Dosage: 740 MG, TOTAL
     Route: 042
  9. TINZAPARIN [Concomitant]
     Active Substance: TINZAPARIN
     Dosage: 14000 IU, QD
     Route: 058
  10. FLUOROURACIL. [Suspect]
     Active Substance: FLUOROURACIL
     Indication: CHEMOTHERAPY
     Dosage: 750 MG, UNK
  11. RANITIDINE. [Concomitant]
     Active Substance: RANITIDINE
     Dosage: 750 MG, BID
     Route: 048

REACTIONS (4)
  - Ventricular fibrillation [Fatal]
  - Chest pain [Fatal]
  - Hypoaesthesia [Fatal]
  - Hyperhidrosis [Fatal]
